FAERS Safety Report 6746867-3 (Version None)
Quarter: 2010Q2

REPORT INFORMATION
  Report Type: 
  Country: None (occurrence: None)
  Receive Date: 20100528
  Receipt Date: 20091030
  Transmission Date: 20101027
  Serious: No
  Sender: FDA-Public Use
  Company Number: US-ASTRAZENECA-2009SE31983

PATIENT
  Sex: Female

DRUGS (1)
  1. PRILOSEC OTC [Suspect]
     Route: 048
     Dates: start: 20091008, end: 20091028

REACTIONS (5)
  - DIZZINESS [None]
  - FATIGUE [None]
  - FEELING JITTERY [None]
  - LETHARGY [None]
  - SOMNOLENCE [None]
